FAERS Safety Report 25099135 (Version 1)
Quarter: 2025Q1

REPORT INFORMATION
  Report Type: Spontaneous
  Country: US (occurrence: None)
  Receive Date: 20250319
  Receipt Date: 20250319
  Transmission Date: 20250408
  Serious: Yes (Hospitalization)
  Sender: FDA-CTU
  Company Number: None

PATIENT
  Sex: Female

DRUGS (4)
  1. ADCIRCA [Suspect]
     Active Substance: TADALAFIL
     Indication: Pulmonary arterial hypertension
     Dosage: FREQUENCY : DAILY;?
     Route: 048
     Dates: start: 202104
  2. TYVASO DPI [Suspect]
     Active Substance: TREPROSTINIL
  3. WINREVAIR [Suspect]
     Active Substance: SOTATERCEPT-CSRK
  4. LETAIRIS [Concomitant]
     Active Substance: AMBRISENTAN

REACTIONS (2)
  - Haemorrhage [None]
  - Therapy interrupted [None]
